FAERS Safety Report 10541742 (Version 1)
Quarter: 2014Q4

REPORT INFORMATION
  Report Type: Spontaneous
  Country: US (occurrence: US)
  Receive Date: 20141024
  Receipt Date: 20141024
  Transmission Date: 20150529
  Serious: No
  Sender: FDA-Public Use
  Company Number: US-ALLERGAN-1415790US

PATIENT
  Age: 64 Year
  Sex: Male

DRUGS (3)
  1. ALPHAGAN P [Suspect]
     Active Substance: BRIMONIDINE TARTRATE
     Dosage: UNK
     Dates: start: 20140219, end: 201405
  2. ALPHAGAN P [Suspect]
     Active Substance: BRIMONIDINE TARTRATE
     Indication: GLAUCOMA
     Dosage: 2 GTT, TID
     Route: 047
     Dates: start: 201405, end: 20140625
  3. FLOMAX [Concomitant]
     Active Substance: TAMSULOSIN HYDROCHLORIDE
     Indication: BLADDER STENOSIS
     Dosage: UNK

REACTIONS (3)
  - Ocular hyperaemia [Unknown]
  - Eye irritation [Unknown]
  - Eye pruritus [Unknown]
